FAERS Safety Report 8157665-0 (Version None)
Quarter: 2012Q1

REPORT INFORMATION
  Report Type: 
  Country: None (occurrence: None)
  Receive Date: 20120222
  Receipt Date: 20120220
  Transmission Date: 20120608
  Serious: Yes (Hospitalization, Other)
  Sender: FDA-Public Use
  Company Number: US-PFIZER INC-2012045054

PATIENT
  Sex: Female
  Weight: 63.492 kg

DRUGS (2)
  1. CELEBREX [Suspect]
     Indication: ARTHRITIS
     Dosage: 200 MG, DAILY
     Route: 048
  2. CELEBREX [Suspect]
     Indication: BACK DISORDER

REACTIONS (2)
  - MALAISE [None]
  - PNEUMONIA [None]
